FAERS Safety Report 4459227-5 (Version None)
Quarter: 2004Q3

REPORT INFORMATION
  Report Type: 
  Country: None (occurrence: None)
  Receive Date: 20040927
  Receipt Date: 20040921
  Transmission Date: 20050211
  Serious: Yes (Other)
  Sender: FDA-Public Use
  Company Number: US-JNJFOC-20040701814

PATIENT
  Sex: Female
  Weight: 58.97 kg

DRUGS (7)
  1. LEVAQUIN [Suspect]
     Route: 049
     Dates: start: 20040604, end: 20040613
  2. LIPITOR [Concomitant]
  3. COZAAR [Concomitant]
  4. ATENOLOL [Concomitant]
  5. LISINOPRIL [Concomitant]
  6. DOXIPIN [Concomitant]
  7. ZETIA [Concomitant]

REACTIONS (2)
  - AGEUSIA [None]
  - ANOSMIA [None]
